FAERS Safety Report 9892475 (Version 2)
Quarter: 2020Q3

REPORT INFORMATION
  Report Type: Report from Study
  Country: GB (occurrence: GB)
  Receive Date: 20140212
  Receipt Date: 20140410
  Transmission Date: 20201104
  Serious: Yes (Other)
  Sender: FDA-Public Use
  Company Number: PHHY2014GB016209

PATIENT
  Age: 69 Year
  Sex: Male
  Weight: 56.3 kg

DRUGS (27)
  1. 5?FLUOROURACIL [Suspect]
     Active Substance: FLUOROURACIL
     Dosage: 3900 MG, UNK
     Route: 040
     Dates: start: 20130410
  2. ONARTUZUMAB. [Suspect]
     Active Substance: ONARTUZUMAB
     Indication: GASTRIC CANCER
     Dosage: UNK UKN, UNK
     Route: 042
     Dates: start: 20130227
  3. PARACETAMOL [Concomitant]
     Active Substance: ACETAMINOPHEN
     Indication: PAIN
     Dosage: 1 G, UNK
     Route: 048
     Dates: start: 20130225
  4. CODEINE PHOSPHATE [Concomitant]
     Active Substance: CODEINE PHOSPHATE
     Indication: PAIN
     Dosage: 10 MG, UNK
     Route: 048
     Dates: start: 20130225, end: 20130409
  5. METOCLOPRAMIDE. [Concomitant]
     Active Substance: METOCLOPRAMIDE
     Indication: PROPHYLAXIS OF NAUSEA AND VOMITING
     Dosage: 10 MG, UNK
     Route: 048
     Dates: start: 20130227
  6. OXALIPLATIN. [Suspect]
     Active Substance: OXALIPLATIN
     Dosage: 140 MG, UNK
     Route: 042
     Dates: start: 20130410
  7. 5?FLUOROURACIL [Suspect]
     Active Substance: FLUOROURACIL
     Dosage: UNK UKN, UNK
     Route: 042
     Dates: start: 20130410
  8. GAVISCON [Concomitant]
     Active Substance: ALUMINUM HYDROXIDE\MAGNESIUM CARBONATE
     Indication: DYSPEPSIA
     Dosage: 1 DF, UNK
     Dates: start: 20130225
  9. RED BLOOD CELLS [Concomitant]
     Active Substance: HUMAN RED BLOOD CELL
  10. OXALIPLATIN. [Suspect]
     Active Substance: OXALIPLATIN
     Indication: GASTRIC CANCER
     Dosage: UNK UKN, UNK
     Route: 042
     Dates: start: 20130227
  11. OXALIPLATIN. [Suspect]
     Active Substance: OXALIPLATIN
     Dosage: UNK UKN, UNK
     Route: 042
     Dates: start: 20130313
  12. FOLINIC ACID [Suspect]
     Active Substance: LEUCOVORIN
     Indication: GASTRIC CANCER
     Dosage: UNK UKN, UNK
     Route: 042
     Dates: start: 20130227
  13. 5?FLUOROURACIL [Suspect]
     Active Substance: FLUOROURACIL
     Dosage: UNK UKN, UNK
     Route: 040
     Dates: start: 20130227
  14. FLUOXETINE [Concomitant]
     Active Substance: FLUOXETINE HYDROCHLORIDE
     Indication: DEPRESSION
     Dosage: 10 MG, UNK
     Route: 048
  15. 5?FLUOROURACIL [Suspect]
     Active Substance: FLUOROURACIL
     Dosage: UNK UKN, UNK
     Route: 042
     Dates: start: 20130313
  16. 5?FLUOROURACIL [Suspect]
     Active Substance: FLUOROURACIL
     Dosage: 650 MG, UNK
     Route: 040
     Dates: start: 20130313
  17. ONARTUZUMAB. [Suspect]
     Active Substance: ONARTUZUMAB
     Dosage: 558 MG, UNK
     Route: 042
     Dates: start: 20130410
  18. DEXAMETHASONE. [Concomitant]
     Active Substance: DEXAMETHASONE
     Dosage: 4 MG, UNK
     Route: 042
     Dates: start: 20130228
  19. FOLINIC ACID [Suspect]
     Active Substance: LEUCOVORIN
     Dosage: UNK UKN, UNK
     Route: 042
     Dates: start: 20130313
  20. FOLINIC ACID [Suspect]
     Active Substance: LEUCOVORIN
     Dosage: 640 MG, UNK
     Route: 042
     Dates: start: 20130410
  21. 5?FLUOROURACIL [Suspect]
     Active Substance: FLUOROURACIL
     Indication: GASTRIC CANCER
     Dosage: UNK UKN, UNK
     Route: 042
     Dates: start: 20130227
  22. LACTULOSE. [Concomitant]
     Active Substance: LACTULOSE
     Indication: CONSTIPATION
     Dosage: 10 ML, UNK
     Route: 048
     Dates: start: 20130225
  23. OMEPRAZOLE. [Concomitant]
     Active Substance: OMEPRAZOLE
     Indication: DYSPEPSIA
     Dosage: 20 MG, UNK
     Route: 048
  24. DEXAMETHASONE. [Concomitant]
     Active Substance: DEXAMETHASONE
     Indication: PROPHYLAXIS OF NAUSEA AND VOMITING
     Dosage: 8 MG, UNK
     Route: 042
     Dates: start: 20130227
  25. ONARTUZUMAB. [Suspect]
     Active Substance: ONARTUZUMAB
     Dosage: UNK UKN, UNK
     Route: 042
     Dates: start: 20130313
  26. ONDANSETRON [Concomitant]
     Active Substance: ONDANSETRON
     Indication: PROPHYLAXIS OF NAUSEA AND VOMITING
     Dosage: 8 MG, UNK
     Route: 042
     Dates: start: 20130227, end: 20130703
  27. SENNA [Concomitant]
     Active Substance: SENNA LEAF\SENNOSIDES\SENNOSIDES A AND B
     Indication: CONSTIPATION
     Dosage: 7.5 MG, UNK
     Route: 048
     Dates: start: 20130225

REACTIONS (2)
  - Subclavian vein thrombosis [Recovered/Resolved]
  - Peripheral swelling [Recovered/Resolved with Sequelae]

NARRATIVE: CASE EVENT DATE: 20130325
